FAERS Safety Report 17717098 (Version 1)
Quarter: 2020Q2

REPORT INFORMATION
  Report Type: Spontaneous
  Country: US (occurrence: US)
  Receive Date: 20200428
  Receipt Date: 20200428
  Transmission Date: 20200714
  Serious: No
  Sender: FDA-Public Use
  Company Number: US-PFIZER INC-2020166722

PATIENT
  Age: 59 Year
  Sex: Female

DRUGS (4)
  1. CRESTOR [Concomitant]
     Active Substance: ROSUVASTATIN CALCIUM
     Dosage: UNK
  2. LIPITOR [Suspect]
     Active Substance: ATORVASTATIN CALCIUM
     Indication: BLOOD CHOLESTEROL INCREASED
     Dosage: UNK
     Dates: start: 2017
  3. SYNTHROID [Concomitant]
     Active Substance: LEVOTHYROXINE SODIUM
     Dosage: UNK
  4. DEPAKOTE [Concomitant]
     Active Substance: DIVALPROEX SODIUM
     Dosage: UNK

REACTIONS (7)
  - Urinary incontinence [Recovered/Resolved]
  - Pain [Recovered/Resolved]
  - Laziness [Not Recovered/Not Resolved]
  - Cystitis [Recovered/Resolved]
  - Fatigue [Not Recovered/Not Resolved]
  - Asthenia [Recovered/Resolved]
  - Gait inability [Recovered/Resolved]

NARRATIVE: CASE EVENT DATE: 20191105
